FAERS Safety Report 4413278-5 (Version None)
Quarter: 2004Q3

REPORT INFORMATION
  Report Type: 
  Country: None (occurrence: None)
  Receive Date: 20040802
  Receipt Date: 20040618
  Transmission Date: 20050211
  Serious: Yes (Hospitalization)
  Sender: FDA-Public Use
  Company Number: 200416159GDDC

PATIENT
  Age: 89 Year
  Sex: Female

DRUGS (6)
  1. FLUDEX [Suspect]
     Indication: CARDIAC FAILURE
     Route: 048
     Dates: start: 20031211, end: 20040112
  2. STABLON [Suspect]
     Indication: DEPRESSION
     Route: 048
     Dates: end: 20040112
  3. ISOPTIN SR [Suspect]
     Indication: ESSENTIAL HYPERTENSION
     Route: 048
     Dates: end: 20040112
  4. LEXOMIL [Suspect]
     Indication: DRUG USE FOR UNKNOWN INDICATION
     Dosage: DOSE: 0.5 DF
     Route: 048
     Dates: end: 20040112
  5. KETOPROFEN [Suspect]
     Indication: DRUG USE FOR UNKNOWN INDICATION
     Route: 048
     Dates: start: 20030109, end: 20040112
  6. COD EFFERALGAN [Concomitant]

REACTIONS (4)
  - FALL [None]
  - HYPOKALAEMIA [None]
  - ORTHOSTATIC HYPOTENSION [None]
  - RENAL FAILURE [None]
